FAERS Safety Report 4588009-9 (Version None)
Quarter: 2005Q1

REPORT INFORMATION
  Report Type: 
  Country: None (occurrence: None)
  Receive Date: 20050217
  Receipt Date: 20050203
  Transmission Date: 20050727
  Serious: Yes (Death)
  Sender: FDA-Public Use
  Company Number: 2005S1000399

PATIENT
  Age: 82 Year
  Sex: Female

DRUGS (3)
  1. CLOZAPINE [Suspect]
     Dosage: 25 MG BID ORAL
     Route: 048
     Dates: start: 20031218, end: 20050101
  2. CARBIDOPA AND LEVODOPA [Concomitant]
  3. PRAMIPEXOLE [Concomitant]

REACTIONS (1)
  - PARKINSON'S DISEASE [None]
